FAERS Safety Report 13349707 (Version 1)
Quarter: 2017Q1

REPORT INFORMATION
  Report Type: Spontaneous
  Country: US (occurrence: US)
  Receive Date: 20170318
  Receipt Date: 20170318
  Transmission Date: 20170429
  Serious: Yes (Hospitalization, Disabling)
  Sender: FDA-Public Use
  Company Number: None

PATIENT
  Age: 43 Year
  Sex: Male
  Weight: 73.35 kg

DRUGS (2)
  1. INTERMEZZO [Concomitant]
     Active Substance: ZOLPIDEM TARTRATE
  2. ADVAIR HFA [Suspect]
     Active Substance: FLUTICASONE PROPIONATE\SALMETEROL XINAFOATE
     Indication: ASTHMA
     Dosage: OTHER STRENGTH:MCG;QUANTITY:1 INHALATION(S);?
     Route: 055
     Dates: start: 20151101, end: 20170317

REACTIONS (2)
  - Tendonitis [None]
  - Tendon rupture [None]

NARRATIVE: CASE EVENT DATE: 20170312
